FAERS Safety Report 6601047-7 (Version None)
Quarter: 2010Q1

REPORT INFORMATION
  Report Type: 
  Country: None (occurrence: None)
  Receive Date: 20100224
  Receipt Date: 20100224
  Transmission Date: 20100710
  Serious: Yes (Life-Threatening, Other)
  Sender: FDA-Public Use
  Company Number: None

PATIENT
  Sex: Male
  Weight: 83.4619 kg

DRUGS (1)
  1. CLINDAMYCIN [Suspect]
     Indication: ORAL SURGERY
     Dosage: 150 MG 4 X DAILY
     Dates: start: 20090122

REACTIONS (5)
  - DIARRHOEA [None]
  - GASTROINTESTINAL HAEMORRHAGE [None]
  - HEPATIC CYST [None]
  - VOMITING [None]
  - WEIGHT DECREASED [None]
